FAERS Safety Report 22199772 (Version 2)
Quarter: 2023Q2

REPORT INFORMATION
  Report Type: Spontaneous
  Country: GB (occurrence: GB)
  Receive Date: 20230412
  Receipt Date: 20230505
  Transmission Date: 20230722
  Serious: Yes (Other)
  Sender: FDA-Public Use
  Company Number: None

PATIENT
  Age: 53 Year

DRUGS (17)
  1. PREGABALIN [Suspect]
     Active Substance: PREGABALIN
     Indication: Product used for unknown indication
  2. FENTANYL [Suspect]
     Active Substance: FENTANYL
     Indication: Product used for unknown indication
  3. OMEPRAZOLE [Concomitant]
     Active Substance: OMEPRAZOLE
     Indication: Product used for unknown indication
  4. SILDENAFIL [Concomitant]
     Active Substance: SILDENAFIL
     Indication: Product used for unknown indication
  5. DOCUSATE [Concomitant]
     Active Substance: DOCUSATE
     Indication: Product used for unknown indication
  6. LISINOPRIL [Concomitant]
     Active Substance: LISINOPRIL
     Indication: Product used for unknown indication
  7. METFORMIN [Concomitant]
     Active Substance: METFORMIN HYDROCHLORIDE
     Indication: Product used for unknown indication
     Dosage: METFORMIN 1G BD
  8. ACETAMINOPHEN [Concomitant]
     Active Substance: ACETAMINOPHEN
     Indication: Product used for unknown indication
  9. CALCIUM\CHOLECALCIFEROL [Concomitant]
     Active Substance: CALCIUM\CHOLECALCIFEROL
     Indication: Product used for unknown indication
  10. LIPITOR [Concomitant]
     Active Substance: ATORVASTATIN CALCIUM
     Indication: Product used for unknown indication
  11. Clenil 100mcg inhaler [Concomitant]
     Indication: Product used for unknown indication
     Dosage: 2PUFFS BD
  12. DERMOL [Concomitant]
     Active Substance: BENZALKONIUM CHLORIDE\CHLORHEXIDINE HYDROCHLORIDE\ISOPROPYL MYRISTATE\PARAFFIN
     Indication: Product used for unknown indication
  13. Humalog Mix 25 KwikPen (6-12) unit [Concomitant]
     Indication: Product used for unknown indication
  14. HYALURONATE SODIUM [Concomitant]
     Active Substance: HYALURONATE SODIUM
     Indication: Product used for unknown indication
  15. LORATADINE [Concomitant]
     Active Substance: LORATADINE
     Indication: Product used for unknown indication
  16. Oloptadine [Concomitant]
     Indication: Product used for unknown indication
     Dosage: EYE DROPS 1MG/ML
  17. FENTANYL [Concomitant]
     Active Substance: FENTANYL
     Indication: Product used for unknown indication
     Dosage: APPLY 2PATCHES EVERY 72HOURS

REACTIONS (1)
  - Drug dependence [Not Recovered/Not Resolved]
